FAERS Safety Report 5547276-5 (Version None)
Quarter: 2007Q4

REPORT INFORMATION
  Report Type: 
  Country: None (occurrence: None)
  Receive Date: 20071128
  Receipt Date: 20061220
  Transmission Date: 20080405
  Serious: Yes (Other)
  Sender: FDA-Public Use
  Company Number: 2006155375

PATIENT
  Sex: Male
  Weight: 77.1 kg

DRUGS (1)
  1. LIPITOR [Suspect]
     Indication: BLOOD CHOLESTEROL INCREASED
     Dosage: 10 MG (10 MG, 1 IN 1 D)

REACTIONS (3)
  - ASTHENIA [None]
  - MUSCULAR WEAKNESS [None]
  - MYALGIA [None]
